FAERS Safety Report 9780230 (Version 1)
Quarter: 2013Q4

REPORT INFORMATION
  Report Type: Spontaneous
  Country: US (occurrence: US)
  Receive Date: 20131223
  Receipt Date: 20131223
  Transmission Date: 20140711
  Serious: Yes (Other)
  Sender: FDA-Public Use
  Company Number: CHPA2013US018309

PATIENT
  Age: 31 Year
  Sex: Female

DRUGS (3)
  1. KERI SHEA BUTTER [Suspect]
     Dosage: UNK UNK, BID
     Route: 061
     Dates: start: 20131123, end: 20131126
  2. KERI ORIGINAL [Suspect]
  3. PENICILLIN                         /02215301/ [Concomitant]
     Dosage: UNK
     Dates: start: 201309

REACTIONS (15)
  - Application site rash [Not Recovered/Not Resolved]
  - Application site erythema [Not Recovered/Not Resolved]
  - Application site vesicles [Recovering/Resolving]
  - Application site pain [Not Recovered/Not Resolved]
  - Skin lesion [Recovering/Resolving]
  - Blister [Recovering/Resolving]
  - Fingerprint loss [Not Recovered/Not Resolved]
  - Pharyngitis streptococcal [Recovered/Resolved]
  - Fungal infection [Recovered/Resolved]
  - Urticaria [Unknown]
  - Skin exfoliation [Not Recovered/Not Resolved]
  - Pruritus [Unknown]
  - Feeling abnormal [Recovered/Resolved]
  - Skin discolouration [Unknown]
  - Hypoaesthesia [Not Recovered/Not Resolved]
